FAERS Safety Report 9258615 (Version 1)
Quarter: 2013Q2

REPORT INFORMATION
  Report Type: Spontaneous
  Country: GB (occurrence: GB)
  Receive Date: 20130426
  Receipt Date: 20130426
  Transmission Date: 20140414
  Serious: Yes (Other)
  Sender: FDA-Public Use
  Company Number: GB-TEVA-399250ISR

PATIENT
  Age: 55 Year
  Sex: Female

DRUGS (2)
  1. NAPROXEN [Suspect]
     Dates: start: 20130301
  2. ESTRADIOL [Concomitant]
     Dates: start: 20130228, end: 20130328

REACTIONS (1)
  - Angioedema [Recovered/Resolved]
